FAERS Safety Report 16805705 (Version 3)
Quarter: 2019Q4

REPORT INFORMATION
  Report Type: Spontaneous
  Country: US (occurrence: US)
  Receive Date: 20190913
  Receipt Date: 20191101
  Transmission Date: 20200122
  Serious: Yes (Other)
  Sender: FDA-Public Use
  Company Number: US-SAOL THERAPEUTICS-2019SAO00347

PATIENT
  Age: 29 Year
  Sex: Female
  Weight: 42 kg

DRUGS (29)
  1. LIORESAL [Suspect]
     Active Substance: BACLOFEN
     Indication: MUSCLE SPASTICITY
     Dosage: 115 ?G, \DAY
     Route: 037
     Dates: end: 201902
  2. BENEFIBER GUAR GUM [Concomitant]
     Dosage: 4 TSP, 1X/DAY
     Route: 048
  3. CALMOSEPTINE [Concomitant]
     Active Substance: MENTHOL\ZINC OXIDE
     Dosage: UNK, AS NEEDED
     Route: 061
  4. FLEET ENEMA [Concomitant]
     Active Substance: SODIUM PHOSPHATE, DIBASIC\SODIUM PHOSPHATE, MONOBASIC
     Dosage: 1 DOSAGE UNITS, AS NEEDED
     Route: 054
  5. HYDROCDONE/ACETAMINOPHEN [Suspect]
     Active Substance: ACETAMINOPHEN\HYDROCODONE
  6. CALCIUM CARBONATE/VITAMIN D3 [Concomitant]
     Active Substance: CALCIUM CARBONATE\CHOLECALCIFEROL
     Dosage: 2.5 ML, 1X/DAY
     Route: 048
  7. LIORESAL [Suspect]
     Active Substance: BACLOFEN
     Dosage: 100 ?G, \DAY
     Route: 037
     Dates: start: 2019, end: 20190829
  8. LIORESAL [Suspect]
     Active Substance: BACLOFEN
     Dosage: 218 ?G, \DAY
     Route: 037
     Dates: start: 20190829, end: 2019
  9. LIORESAL [Suspect]
     Active Substance: BACLOFEN
     Dosage: 60 MG
     Route: 048
     Dates: end: 20190829
  10. CETIRIZINE [Concomitant]
     Active Substance: CETIRIZINE HYDROCHLORIDE
     Dosage: 10 MG, 1X/DAY
     Route: 048
  11. BENADRYL [Concomitant]
     Active Substance: DIPHENHYDRAMINE HYDROCHLORIDE
     Dosage: 25 MG, AS NEEDED
     Route: 048
  12. ASPERCREME NOS [Concomitant]
     Active Substance: MENTHOL\TROLAMINE SALICYLATE
     Dosage: 1 DOSAGE UNITS (PATCH), 1X/DAY
     Route: 061
  13. LIORESAL [Suspect]
     Active Substance: BACLOFEN
     Indication: PAIN
     Dosage: 218.1 ?G, \DAY
     Route: 037
     Dates: start: 201902, end: 2019
  14. BUSPAR [Concomitant]
     Active Substance: BUSPIRONE HYDROCHLORIDE
     Dosage: 7.5 MG, 2X/DAY
     Route: 048
  15. NUTREN 1.0 FEEDING TUBE [Concomitant]
     Dosage: 65 ML/HOUR FOR 12 HOURS (WITH ADDITIOAL BOLUS AS NEEDED)
  16. GLUCOSAMINE MSM [Concomitant]
     Dosage: 15 ML, 2X/DAY
     Route: 048
  17. MOTRIN/ADVIL [Concomitant]
     Dosage: 800 MG, 3X/DAY AS NEEDED
     Route: 048
  18. ZOFRAN-ODT [Concomitant]
     Dosage: 4 MG, AS NEEDED
     Route: 048
  19. GABLOFEN [Suspect]
     Active Substance: BACLOFEN
     Dosage: 240 ?G, \DAY
     Route: 037
     Dates: start: 2019
  20. LIORESAL [Suspect]
     Active Substance: BACLOFEN
     Dosage: 30 MG
     Dates: start: 20190829
  21. NEXIUM [Concomitant]
     Active Substance: ESOMEPRAZOLE MAGNESIUM
     Dosage: 20 MG, 2X/DAY
     Route: 048
  22. TRIPLE ANTIBIOTIC [Concomitant]
     Dosage: 1 DOSAGE UNITS, 2X/DAY
     Route: 061
  23. LIORESAL [Suspect]
     Active Substance: BACLOFEN
     Dosage: 240 ?G, \DAY
     Route: 037
  24. GABLOFEN [Suspect]
     Active Substance: BACLOFEN
     Indication: MUSCLE SPASTICITY
     Dosage: 115 ?G, \DAY
     Route: 037
     Dates: start: 2019, end: 2019
  25. GABLOFEN [Suspect]
     Active Substance: BACLOFEN
     Indication: PAIN
     Dosage: 100 ?G, \DAY
     Route: 037
     Dates: start: 2019, end: 2019
  26. ACETAMINOPHEN. [Concomitant]
     Active Substance: ACETAMINOPHEN
     Dosage: 500 MG, AS NEEDED
     Route: 048
  27. PERIDEX [Concomitant]
     Active Substance: CHLORHEXIDINE GLUCONATE
     Dosage: 15 ML, AS DIRECTED
     Route: 048
  28. PROBIOTIC 4X ORAL- B INFANTIS/B ANI/B LON/B BIFID [Concomitant]
     Dosage: 1 CAPSULES, 2X/DAY
     Route: 048
  29. ZOLOFT [Concomitant]
     Active Substance: SERTRALINE HYDROCHLORIDE
     Dosage: 200 MG, 1X/DAY
     Route: 048

REACTIONS (24)
  - Device occlusion [Recovered/Resolved]
  - Cold sweat [Not Recovered/Not Resolved]
  - Hyperhidrosis [Not Recovered/Not Resolved]
  - Muscle twitching [Not Recovered/Not Resolved]
  - Muscle tightness [Not Recovered/Not Resolved]
  - Pain [Recovered/Resolved]
  - Speech disorder [Not Recovered/Not Resolved]
  - Unevaluable event [Not Recovered/Not Resolved]
  - CSF test abnormal [Unknown]
  - Dyspnoea [Unknown]
  - Nausea [Recovered/Resolved]
  - Somnolence [Recovered/Resolved]
  - Irritability [Unknown]
  - Personality change [Recovered/Resolved]
  - Device physical property issue [Recovered/Resolved]
  - Constipation [Unknown]
  - Drug withdrawal syndrome [Not Recovered/Not Resolved]
  - Faecaloma [Unknown]
  - Salivary hypersecretion [Unknown]
  - Insomnia [Not Recovered/Not Resolved]
  - Dysphagia [Not Recovered/Not Resolved]
  - Muscle spasticity [Not Recovered/Not Resolved]
  - Pruritus [Unknown]
  - Device dislocation [Recovered/Resolved]

NARRATIVE: CASE EVENT DATE: 20040611
